FAERS Safety Report 7454954-X (Version None)
Quarter: 2011Q2

REPORT INFORMATION
  Report Type: 
  Country: None (occurrence: None)
  Receive Date: 20110503
  Receipt Date: 20110426
  Transmission Date: 20111010
  Serious: Yes (Disabling, Other)
  Sender: FDA-Public Use
  Company Number: DK-BRISTOL-MYERS SQUIBB COMPANY-15695760

PATIENT
  Age: 53 Year
  Sex: Female
  Weight: 70 kg

DRUGS (1)
  1. KENACORT [Suspect]
     Indication: EPICONDYLITIS
     Dosage: INJ
     Route: 058
     Dates: start: 20110101

REACTIONS (1)
  - CHORIORETINOPATHY [None]
